FAERS Safety Report 9656294 (Version 1)
Quarter: 2013Q4

REPORT INFORMATION
  Report Type: Spontaneous
  Country: US (occurrence: US)
  Receive Date: 20131030
  Receipt Date: 20131030
  Transmission Date: 20140711
  Serious: Yes (Other)
  Sender: FDA-Public Use
  Company Number: US-PFIZER INC-2013307439

PATIENT
  Age: 46 Year
  Sex: Female
  Weight: 51.7 kg

DRUGS (5)
  1. NEURONTIN [Suspect]
     Indication: FIBROMYALGIA
     Dosage: 600 MG, 3X/DAY
     Dates: start: 200904, end: 201112
  2. LYRICA [Suspect]
     Indication: FIBROMYALGIA
     Dosage: UNK
  3. PERCOCET [Concomitant]
     Indication: PAIN
     Dosage: ^10MG^ AS NEEDED
  4. PERCOCET [Concomitant]
     Indication: SPONDYLITIS
  5. SOMA [Concomitant]
     Indication: MUSCLE SPASMS
     Dosage: 350 MG, 2X/DAY

REACTIONS (13)
  - Off label use [Unknown]
  - Confusional state [Unknown]
  - Memory impairment [Unknown]
  - Disturbance in attention [Unknown]
  - Paraesthesia [Unknown]
  - Dizziness [Unknown]
  - Eye irritation [Unknown]
  - Eye pain [Unknown]
  - Headache [Unknown]
  - Constipation [Unknown]
  - Diarrhoea [Unknown]
  - Fibromyalgia [Unknown]
  - Speech disorder [Unknown]
